FAERS Safety Report 19510502 (Version 1)
Quarter: 2021Q3

REPORT INFORMATION
  Report Type: Spontaneous
  Country: GB (occurrence: GB)
  Receive Date: 20210708
  Receipt Date: 20210708
  Transmission Date: 20211014
  Serious: Yes (Other)
  Sender: FDA-Public Use
  Company Number: GB-JNJFOC-20210702044

PATIENT
  Age: 67 Year
  Sex: Male
  Weight: 71 kg

DRUGS (5)
  1. STELARA [Suspect]
     Active Substance: USTEKINUMAB
     Indication: COLITIS ULCERATIVE
     Dosage: 390MG
     Route: 051
     Dates: start: 20201119
  2. MESALAZINE [Concomitant]
     Active Substance: MESALAMINE
     Indication: ILL-DEFINED DISORDER
  3. PREDNISOLONE. [Concomitant]
     Active Substance: PREDNISOLONE
     Indication: ILL-DEFINED DISORDER
  4. STELARA [Suspect]
     Active Substance: USTEKINUMAB
     Indication: ILL-DEFINED DISORDER
  5. VITAMIN D [ERGOCALCIFEROL] [Concomitant]
     Active Substance: ERGOCALCIFEROL
     Indication: ILL-DEFINED DISORDER

REACTIONS (6)
  - Dyspnoea [Recovering/Resolving]
  - Headache [Recovered/Resolved]
  - Fatigue [Not Recovered/Not Resolved]
  - Erythema [Recovered/Resolved]
  - Abdominal distension [Recovered/Resolved with Sequelae]
  - Nausea [Recovered/Resolved]

NARRATIVE: CASE EVENT DATE: 20201129
